FAERS Safety Report 6015272-X (Version None)
Quarter: 2008Q4

REPORT INFORMATION
  Report Type: 
  Country: None (occurrence: None)
  Receive Date: 20081219
  Receipt Date: 20081219
  Transmission Date: 20090506
  Serious: Yes (Other)
  Sender: FDA-Public Use
  Company Number: None

PATIENT
  Age: 59 Year
  Sex: Female
  Weight: 68.9467 kg

DRUGS (2)
  1. SOMA [Suspect]
     Indication: INFLAMMATION
     Dosage: 250MG 4 TIMES DAILY PO
     Route: 048
     Dates: start: 20081207, end: 20081208
  2. SOMA [Suspect]
     Indication: WHIPLASH INJURY
     Dosage: 250MG 4 TIMES DAILY PO
     Route: 048
     Dates: start: 20081207, end: 20081208

REACTIONS (2)
  - GENERALISED ERYTHEMA [None]
  - SWELLING [None]
